FAERS Safety Report 9231205 (Version 1)
Quarter: 2013Q2

REPORT INFORMATION
  Report Type: Spontaneous
  Country: US (occurrence: US)
  Receive Date: 20130415
  Receipt Date: 20130415
  Transmission Date: 20140414
  Serious: No
  Sender: FDA-Public Use
  Company Number: US-TEVA-343657USA

PATIENT
  Sex: Female

DRUGS (2)
  1. TREANDA [Suspect]
  2. LUNESTA SHOT [Concomitant]

REACTIONS (1)
  - White blood cell count decreased [Not Recovered/Not Resolved]
